FAERS Safety Report 5503534-1 (Version None)
Quarter: 2007Q4

REPORT INFORMATION
  Report Type: 
  Country: None (occurrence: None)
  Receive Date: 20071031
  Receipt Date: 20071024
  Transmission Date: 20080405
  Serious: Yes (Other)
  Sender: FDA-Public Use
  Company Number: US-GENENTECH-250453

PATIENT
  Sex: Male

DRUGS (9)
  1. OMALIZUMAB [Suspect]
     Indication: ASTHMA
     Dosage: UNK, UNK
     Route: 064
  2. OMALIZUMAB [Suspect]
     Route: 064
     Dates: start: 20051115
  3. PRENATAL VITAMINS [Concomitant]
     Indication: PREGNANCY
     Route: 064
  4. ADVAIR DISKUS 100/50 [Concomitant]
     Indication: ASTHMA
     Route: 064
  5. ZYRTEC [Concomitant]
     Indication: HYPERSENSITIVITY
     Dosage: UNK, UNK
     Route: 064
  6. ALBUTEROL [Concomitant]
     Indication: ASTHMA
     Route: 064
  7. ALLERGY INJECTION UNKNOWN ALLERGENS [Concomitant]
     Indication: HYPERSENSITIVITY
     Route: 064
  8. NASONEX [Concomitant]
     Indication: HYPERSENSITIVITY
     Route: 064
  9. PATANOL [Concomitant]
     Indication: HYPERSENSITIVITY
     Route: 064

REACTIONS (1)
  - JAUNDICE NEONATAL [None]
